FAERS Safety Report 4705970-X (Version None)
Quarter: 2005Q2

REPORT INFORMATION
  Report Type: 
  Country: None (occurrence: None)
  Receive Date: 20050629
  Receipt Date: 20050620
  Transmission Date: 20051028
  Serious: Yes (Hospitalization)
  Sender: FDA-Public Use
  Company Number: 2005-02171

PATIENT
  Age: 72 Year
  Sex: Female

DRUGS (3)
  1. OXYTROL [Suspect]
     Indication: URINARY INCONTINENCE
     Dosage: 1 PATCH, 2/WEEK, TRANSDERMAL
     Route: 062
     Dates: start: 20040316, end: 20050206
  2. OXYTROL [Suspect]
     Indication: URINARY INCONTINENCE
     Dosage: 1 PATCH, 2/WEEK, TRANSDERMAL
     Route: 062
     Dates: start: 20050209, end: 20050614
  3. AVONEX [Suspect]
     Indication: MULTIPLE SCLEROSIS
     Dosage: 0.5 ML, 1/WEEK, INTRAMUSCULAR
     Route: 030
     Dates: end: 20041101

REACTIONS (5)
  - CONDITION AGGRAVATED [None]
  - DEPRESSION [None]
  - HOT FLUSH [None]
  - MEMORY IMPAIRMENT [None]
  - MOOD ALTERED [None]
